FAERS Safety Report 5798974-X (Version None)
Quarter: 2008Q3

REPORT INFORMATION
  Report Type: 
  Country: None (occurrence: None)
  Receive Date: 20080701
  Receipt Date: 20080616
  Transmission Date: 20090109
  Serious: Yes (Other)
  Sender: FDA-Public Use
  Company Number: 2008S1010553

PATIENT
  Age: 18 Year
  Sex: Male

DRUGS (3)
  1. CYSTAGON [Suspect]
     Indication: CYSTINOSIS
     Dosage: 600 MG;4 TIMES A DAY;ORAL
     Route: 048
  2. MERCAPTOPURINE [Concomitant]
  3. CYSTEAMINE [Concomitant]

REACTIONS (4)
  - PAPILLARY TUMOUR OF RENAL PELVIS [None]
  - RENAL CELL CARCINOMA [None]
  - RENAL FAILURE CHRONIC [None]
  - RENAL MASS [None]
